FAERS Safety Report 9106724 (Version 1)
Quarter: 2013Q1

REPORT INFORMATION
  Report Type: Spontaneous
  Country: RU (occurrence: RU)
  Receive Date: 20130221
  Receipt Date: 20130221
  Transmission Date: 20140127
  Serious: Yes (Hospitalization, Other)
  Sender: FDA-Public Use
  Company Number: RU-ROCHE-1190878

PATIENT
  Age: 10 Year
  Sex: Female

DRUGS (17)
  1. MYCOPHENOLATE MOFETIL [Suspect]
     Indication: SYSTEMIC LUPUS ERYTHEMATOSUS
     Route: 048
  2. RITUXIMAB [Suspect]
     Indication: SYSTEMIC LUPUS ERYTHEMATOSUS
     Dosage: DURING 4 SEQUENTIAL WEEKS
     Route: 042
  3. TROPISETRON [Concomitant]
     Indication: PREMEDICATION
     Route: 065
  4. CLARITHROMYCIN [Concomitant]
     Indication: LOBAR PNEUMONIA
  5. CO-TRIMOXAZOLE [Concomitant]
     Indication: LOBAR PNEUMONIA
     Route: 065
  6. CO-TRIMOXAZOLE [Concomitant]
     Indication: PROPHYLAXIS
  7. HYDROXYCHLOROQUINE [Concomitant]
     Indication: ANTIPHOSPHOLIPID SYNDROME
     Route: 065
  8. PREDNISOLONE [Concomitant]
     Route: 048
  9. PREDNISOLONE [Concomitant]
     Route: 048
     Dates: end: 200903
  10. PREDNISOLONE [Concomitant]
     Route: 048
  11. PREDNISOLONE [Concomitant]
     Route: 048
  12. PREDNISOLONE [Concomitant]
     Route: 048
  13. METHYLPREDNISOLONE [Concomitant]
     Dosage: WITHIN 3 SEQUENTIAL DAYS
     Route: 065
  14. METHYLPREDNISOLONE [Concomitant]
     Dosage: 3 TIMES
     Route: 065
  15. METHYLPREDNISOLONE [Concomitant]
     Dosage: THREE TIMES WITHIN 3 SEQUENTIAL DAYS
     Route: 065
  16. METHYLPREDNISOLONE [Concomitant]
     Route: 065
  17. CEFTRIAXONE [Concomitant]

REACTIONS (3)
  - Lobar pneumonia [Recovered/Resolved]
  - Blood immunoglobulin M decreased [Recovered/Resolved]
  - Drug ineffective [Unknown]
